FAERS Safety Report 19928893 (Version 1)
Quarter: 2021Q4

REPORT INFORMATION
  Report Type: Spontaneous
  Country: CA (occurrence: CA)
  Receive Date: 20211007
  Receipt Date: 20211007
  Transmission Date: 20220303
  Serious: Yes (Death, Life-Threatening)
  Sender: FDA-Public Use
  Company Number: CA-TEVA-2021-CA-1961990

PATIENT
  Age: 73 Year
  Sex: Male
  Weight: 71 kg

DRUGS (5)
  1. OXALIPLATIN [Suspect]
     Active Substance: OXALIPLATIN
     Route: 065
  2. FLUOROURACIL [Suspect]
     Active Substance: FLUOROURACIL
     Indication: Oesophageal adenocarcinoma
     Route: 065
  3. ELIQUIS [Concomitant]
     Active Substance: APIXABAN
  4. FLOMAX [Concomitant]
     Active Substance: TAMSULOSIN HYDROCHLORIDE
  5. STELAZINE [Concomitant]
     Active Substance: TRIFLUOPERAZINE HYDROCHLORIDE

REACTIONS (8)
  - Aspiration [Fatal]
  - Diarrhoea [Fatal]
  - Enteritis [Fatal]
  - General physical health deterioration [Fatal]
  - Neutropenia [Fatal]
  - Septic shock [Fatal]
  - Shock [Fatal]
  - Vomiting [Fatal]
